FAERS Safety Report 4522005-2 (Version None)
Quarter: 2004Q4

REPORT INFORMATION
  Report Type: 
  Country: None (occurrence: None)
  Receive Date: 20041207
  Receipt Date: 20041207
  Transmission Date: 20050328
  Serious: Yes (Hospitalization)
  Sender: FDA-Public Use
  Company Number: None

PATIENT
  Sex: Male

DRUGS (3)
  1. PACLITAXEL [Suspect]
     Indication: CARCINOMA
     Dosage: 100 MG ONCE INTRAVENOUS
     Route: 042
     Dates: start: 20040817, end: 20040817
  2. CARBOPLATIN [Concomitant]
  3. ONDANSETRON [Concomitant]

REACTIONS (5)
  - COMA [None]
  - FEELING ABNORMAL [None]
  - FLUSHING [None]
  - HYPOTENSION [None]
  - INFUSION RELATED REACTION [None]
